FAERS Safety Report 8285525-3 (Version None)
Quarter: 2012Q2

REPORT INFORMATION
  Report Type: 
  Country: None (occurrence: None)
  Receive Date: 20120413
  Receipt Date: 20110919
  Transmission Date: 20120825
  Serious: No
  Sender: FDA-Public Use
  Company Number: US-ASTRAZENECA-2011SE43423

PATIENT
  Age: 64 Year
  Sex: Male

DRUGS (6)
  1. NEXIUM [Suspect]
     Indication: GASTROOESOPHAGEAL REFLUX DISEASE
     Route: 048
     Dates: start: 20091007
  2. PRILOSEC [Suspect]
     Route: 048
  3. ZANTAC [Concomitant]
  4. KAPIDEX [Concomitant]
  5. ROLAIDS [Concomitant]
  6. CALCIUM CARBONATE [Concomitant]

REACTIONS (6)
  - DRUG DOSE OMISSION [None]
  - FLASHBACK [None]
  - EXPOSURE TO TOXIC AGENT [None]
  - DRUG INEFFECTIVE [None]
  - DEPRESSION [None]
  - DYSPEPSIA [None]
